FAERS Safety Report 18473168 (Version 2)
Quarter: 2020Q4

REPORT INFORMATION
  Report Type: Spontaneous
  Country: DE (occurrence: DE)
  Receive Date: 20201106
  Receipt Date: 20201119
  Transmission Date: 20210114
  Serious: Yes (Hospitalization, Disabling)
  Sender: FDA-Public Use
  Company Number: DE-EMD SERONO-9195498

PATIENT
  Age: 36 Year
  Sex: Male

DRUGS (2)
  1. MAVENCLAD [Suspect]
     Active Substance: CLADRIBINE
     Dosage: SECOND CYCLE THERAPY
     Route: 048
     Dates: start: 202004
  2. MAVENCLAD [Suspect]
     Active Substance: CLADRIBINE
     Indication: MULTIPLE SCLEROSIS
     Dosage: FIRST CYCLE THERAPY
     Route: 048
     Dates: start: 20200326

REACTIONS (4)
  - Fatigue [Not Recovered/Not Resolved]
  - Muscular weakness [Not Recovered/Not Resolved]
  - Drug ineffective [Unknown]
  - Bladder dysfunction [Not Recovered/Not Resolved]

NARRATIVE: CASE EVENT DATE: 202008
